FAERS Safety Report 7708496-4 (Version None)
Quarter: 2011Q3

REPORT INFORMATION
  Report Type: 
  Country: None (occurrence: None)
  Receive Date: 20110819
  Receipt Date: 20110812
  Transmission Date: 20111222
  Serious: Yes (Life-Threatening, Hospitalization)
  Sender: FDA-Public Use
  Company Number: TPA2011A04409

PATIENT
  Sex: Female
  Weight: 61.2356 kg

DRUGS (2)
  1. ANTIHYPERTENSIVES (ANTIHYPERTENSIVES) [Concomitant]
  2. DEXILANT [Suspect]
     Dosage: 60 MG
     Dates: start: 20110101

REACTIONS (3)
  - HYPERSENSITIVITY [None]
  - HYPOTENSION [None]
  - DIZZINESS [None]
